FAERS Safety Report 23099667 (Version 1)
Quarter: 2023Q4

REPORT INFORMATION
  Report Type: Spontaneous
  Country: US (occurrence: None)
  Receive Date: 20231023
  Receipt Date: 20231023
  Transmission Date: 20240109
  Serious: Yes (Other)
  Sender: FDA-Public Use
  Company Number: None

PATIENT
  Age: 34 Year
  Sex: Female
  Weight: 82.55 kg

DRUGS (2)
  1. SOFOSBUVIR\VELPATASVIR [Suspect]
     Active Substance: SOFOSBUVIR\VELPATASVIR
     Indication: Hepatitis C
     Dosage: OTHER QUANTITY : 1 TOT;?FREQUENCY : DAILY;?
     Route: 048
     Dates: start: 20231009, end: 20231016
  2. OZEMPIC [Suspect]
     Active Substance: SEMAGLUTIDE

REACTIONS (6)
  - Anxiety [None]
  - Withdrawal syndrome [None]
  - Depression [None]
  - Restless legs syndrome [None]
  - Therapy interrupted [None]
  - Drug monitoring procedure not performed [None]

NARRATIVE: CASE EVENT DATE: 20231023
